FAERS Safety Report 6154310-0 (Version None)
Quarter: 2009Q2

REPORT INFORMATION
  Report Type: 
  Country: None (occurrence: None)
  Receive Date: 20090410
  Receipt Date: 20090401
  Transmission Date: 20091009
  Serious: Yes (Hospitalization)
  Sender: FDA-Public Use
  Company Number: 2009AP001351

PATIENT
  Age: 41 Year
  Sex: Female

DRUGS (3)
  1. CITALOPRAM HYDROBROMIDE [Suspect]
     Indication: DEPRESSION
     Dosage: 20 MG; QD PO, 20 MG; TAB; PO; QD
     Route: 048
     Dates: start: 20070801, end: 20080301
  2. CODEINE SUL TAB [Concomitant]
  3. MEDROXYPROGESTERONE ACETATE [Concomitant]

REACTIONS (1)
  - RENAL FAILURE [None]
